FAERS Safety Report 8286389-4 (Version None)
Quarter: 2012Q2

REPORT INFORMATION
  Report Type: 
  Country: None (occurrence: None)
  Receive Date: 20120411
  Receipt Date: 20120411
  Transmission Date: 20120825
  Serious: Yes (Disabling)
  Sender: FDA-Public Use
  Company Number: None

PATIENT
  Sex: Male
  Weight: 91 kg

DRUGS (2)
  1. RISPERIDONE [Suspect]
     Indication: SCHIZOAFFECTIVE DISORDER
     Dosage: 4 MG 1 TAB DAILY ORAL
     Route: 048
     Dates: start: 19950101, end: 20120101
  2. PROZAC [Suspect]
     Indication: DEPRESSION
     Dosage: 1 CAP DAILY ORAL
     Route: 048
     Dates: start: 19950101, end: 20090101

REACTIONS (7)
  - MUSCLE TWITCHING [None]
  - DISORIENTATION [None]
  - HEART RATE INCREASED [None]
  - COGNITIVE DISORDER [None]
  - TIC [None]
  - SELF ESTEEM DECREASED [None]
  - CONFUSIONAL STATE [None]
